FAERS Safety Report 8547292 (Version 3)
Quarter: 2013Q3

REPORT INFORMATION
  Report Type: Spontaneous
  Country: FR (occurrence: FR)
  Receive Date: 20120504
  Receipt Date: 20130923
  Transmission Date: 20140515
  Serious: Yes (Death)
  Sender: FDA-Public Use
  Company Number: FR-ALEXION-A201200795

PATIENT
  Age: 64 Year
  Sex: Female

DRUGS (4)
  1. SOLIRIS 300MG [Suspect]
     Indication: GLOMERULONEPHRITIS MEMBRANOPROLIFERATIVE
     Dosage: 900 MG, QW
     Route: 042
     Dates: start: 20120227, end: 20120323
  2. SOLIRIS 300MG [Suspect]
     Indication: OFF LABEL USE
     Dosage: 1200 MG, Q2W
     Route: 042
  3. SOLIRIS 300MG [Suspect]
     Dosage: UNK
     Dates: start: 20120227
  4. CORTANCYL [Suspect]
     Dosage: 1 MG, QD
     Route: 048
     Dates: start: 20120323, end: 20120410

REACTIONS (4)
  - Septic shock [Fatal]
  - Erysipelas [Fatal]
  - Agranulocytosis [Fatal]
  - Escherichia bacteraemia [Fatal]
